FAERS Safety Report 5681873-1 (Version None)
Quarter: 2008Q1

REPORT INFORMATION
  Report Type: 
  Country: None (occurrence: None)
  Receive Date: 20080327
  Receipt Date: 20070322
  Transmission Date: 20080703
  Serious: No
  Sender: FDA-Public Use
  Company Number: US-BAYER-US-2007-010244

PATIENT
  Age: 46 Year
  Sex: Female
  Weight: 79 kg

DRUGS (3)
  1. MIRENA [Suspect]
     Indication: CONTRACEPTION
     Route: 015
     Dates: start: 20070320, end: 20070320
  2. ADVIL [Concomitant]
  3. MOTRIN [Concomitant]

REACTIONS (2)
  - ABDOMINAL PAIN [None]
  - PANIC REACTION [None]
